FAERS Safety Report 8869838 (Version 1)
Quarter: 2012Q4

REPORT INFORMATION
  Report Type: 
  Country: ES (occurrence: ES)
  Receive Date: 20121028
  Receipt Date: 20121028
  Transmission Date: 20130627
  Serious: Yes (Other)
  Sender: FDA-Public Use
  Company Number: ES-JNJFOC-20121010698

PATIENT

DRUGS (3)
  1. DARUNAVIR [Suspect]
     Indication: HIV INFECTION
     Route: 065
  2. DARUNAVIR [Suspect]
     Indication: HIV INFECTION
     Route: 065
  3. RITONAVIR [Concomitant]
     Indication: HIV INFECTION
     Route: 065

REACTIONS (2)
  - Toxicity to various agents [Unknown]
  - Drug level increased [Unknown]
